FAERS Safety Report 17351487 (Version 1)
Quarter: 2020Q1

REPORT INFORMATION
  Report Type: Spontaneous
  Country: US (occurrence: US)
  Receive Date: 20200130
  Receipt Date: 20200130
  Transmission Date: 20200409
  Serious: Yes (Other)
  Sender: FDA-Public Use
  Company Number: US-TEVA-2020-US-1175613

PATIENT
  Age: 79 Year
  Sex: Male

DRUGS (1)
  1. PANTOPRAZOLE [Suspect]
     Active Substance: PANTOPRAZOLE
     Indication: OESOPHAGEAL ULCER
     Dosage: 80 MILLIGRAM DAILY; 40 MG, TWICE DAILY
     Route: 048

REACTIONS (1)
  - Subacute cutaneous lupus erythematosus [Recovered/Resolved]
